FAERS Safety Report 15233166 (Version 2)
Quarter: 2018Q3

REPORT INFORMATION
  Report Type: Spontaneous
  Country: US (occurrence: US)
  Receive Date: 20180802
  Receipt Date: 20180830
  Transmission Date: 20181010
  Serious: Yes (Other)
  Sender: FDA-Public Use
  Company Number: US-TEVA-2018-US-936223

PATIENT
  Age: 57 Year
  Sex: Female

DRUGS (7)
  1. SPIRONOLACTONE. [Concomitant]
     Active Substance: SPIRONOLACTONE
  2. ESCITALOPRAM [Concomitant]
     Active Substance: ESCITALOPRAM OXALATE
  3. LORATADINE. [Concomitant]
     Active Substance: LORATADINE
  4. VALSARTAN W/HYDROCHLOROTHIAZIDE [Suspect]
     Active Substance: HYDROCHLOROTHIAZIDE\VALSARTAN
     Indication: HYPERTENSION
     Dosage: DOSE STRENGTH:  320/25MG
     Route: 065
     Dates: start: 2000
  5. VALSARTAN W/HYDROCHLOROTHIAZIDE [Suspect]
     Active Substance: HYDROCHLOROTHIAZIDE\VALSARTAN
     Dosage: DOSE STRENGTH:  320/25MG
     Route: 065
     Dates: start: 2008, end: 20180715
  6. VALSARTAN ? HYDROCHLOROTHIAZIDE [Concomitant]
     Dosage: DOSE STRENGTH:  320/25MG
  7. VITAMIN D [Concomitant]
     Active Substance: CHOLECALCIFEROL
     Dosage: 2000 UNITS
     Route: 065

REACTIONS (1)
  - Lobular breast carcinoma in situ [Unknown]

NARRATIVE: CASE EVENT DATE: 201701
